FAERS Safety Report 4882754-3 (Version None)
Quarter: 2006Q1

REPORT INFORMATION
  Report Type: 
  Country: None (occurrence: None)
  Receive Date: 20060117
  Receipt Date: 20050718
  Transmission Date: 20060701
  Serious: Yes (Hospitalization, Disabling)
  Sender: FDA-Public Use
  Company Number: US-MERCK-0507USA02265

PATIENT
  Age: 69 Year
  Sex: Male
  Weight: 89 kg

DRUGS (9)
  1. VIOXX [Suspect]
     Indication: BACK PAIN
     Route: 048
     Dates: start: 20030401, end: 20030715
  2. ALPRAZOLAM [Concomitant]
     Route: 065
  3. PROPOXYPHENE HYDROCHLORIDE [Concomitant]
     Route: 065
  4. POTASSIUM (UNSPECIFIED) [Concomitant]
     Route: 065
  5. FUROSEMIDE [Concomitant]
     Route: 065
  6. PLAVIX [Concomitant]
     Route: 065
  7. COZAAR [Concomitant]
     Route: 065
  8. PROPRANOLOL HYDROCHLORIDE [Concomitant]
     Route: 065
  9. ZOCOR [Concomitant]
     Route: 065

REACTIONS (6)
  - ABDOMINAL DISTENSION [None]
  - HAEMORRHOIDS [None]
  - MYOCARDIAL INFARCTION [None]
  - NOCTURIA [None]
  - VENTRICULAR TACHYCARDIA [None]
  - WHEEZING [None]
